FAERS Safety Report 21172765 (Version 3)
Quarter: 2022Q3

REPORT INFORMATION
  Report Type: Spontaneous
  Country: US (occurrence: None)
  Receive Date: 20220804
  Receipt Date: 20220930
  Transmission Date: 20221026
  Serious: No
  Sender: FDA-Public Use
  Company Number: 2022A269472

PATIENT
  Sex: Female
  Weight: 109.3 kg

DRUGS (1)
  1. BYDUREON BCISE [Suspect]
     Active Substance: EXENATIDE
     Indication: Diabetes mellitus
     Route: 058
     Dates: start: 202205

REACTIONS (4)
  - Memory impairment [Unknown]
  - Drug dose omission by device [Unknown]
  - Product use issue [Unknown]
  - Device delivery system issue [Unknown]
